FAERS Safety Report 5425989-3 (Version None)
Quarter: 2007Q3

REPORT INFORMATION
  Report Type: 
  Country: None (occurrence: None)
  Receive Date: 20070827
  Receipt Date: 20070815
  Transmission Date: 20080115
  Serious: Yes (Death, Hospitalization)
  Sender: FDA-Public Use
  Company Number: IL-AMGEN-UK239328

PATIENT
  Age: 75 Year
  Sex: Male

DRUGS (7)
  1. NEULASTIM [Suspect]
     Indication: CHEMOTHERAPY
     Route: 058
     Dates: start: 20070807, end: 20070807
  2. CYCLOPHOSPHAMIDE [Concomitant]
     Dates: start: 20070806
  3. DOXORUBICIN HCL [Concomitant]
     Dates: start: 20070806
  4. ONCOVIN [Concomitant]
     Dates: start: 20070806
  5. PREDNISONE TAB [Concomitant]
     Dates: start: 20070806
  6. DEXRAZOXANE [Concomitant]
  7. RITUXIMAB [Concomitant]
     Dates: start: 20070805

REACTIONS (2)
  - CARDIOPULMONARY FAILURE [None]
  - DYSPNOEA [None]
